FAERS Safety Report 17146415 (Version 7)
Quarter: 2020Q4

REPORT INFORMATION
  Report Type: Report from Study
  Country: US (occurrence: US)
  Receive Date: 20191212
  Receipt Date: 20201122
  Transmission Date: 20210113
  Serious: Yes (Other)
  Sender: FDA-Public Use
  Company Number: NVSC2019US067380

PATIENT
  Sex: Male

DRUGS (1)
  1. COSENTYX [Suspect]
     Active Substance: SECUKINUMAB
     Indication: PRODUCT USED FOR UNKNOWN INDICATION
     Dosage: UNK
     Route: 065

REACTIONS (5)
  - Large intestine polyp [Unknown]
  - Gait disturbance [Unknown]
  - Grip strength decreased [Unknown]
  - Oral candidiasis [Not Recovered/Not Resolved]
  - Hair growth abnormal [Not Recovered/Not Resolved]
